FAERS Safety Report 16047804 (Version 1)
Quarter: 2019Q1

REPORT INFORMATION
  Report Type: Spontaneous
  Country: US (occurrence: US)
  Receive Date: 20190307
  Receipt Date: 20190307
  Transmission Date: 20190418
  Serious: No
  Sender: FDA-Public Use
  Company Number: US-INTERCEPT-PMOCA2017000241

PATIENT

DRUGS (11)
  1. LEVOFLOXACIN. [Concomitant]
     Active Substance: LEVOFLOXACIN
  2. CALCIUM [Concomitant]
     Active Substance: CALCIUM
  3. ROCEPHIN [Concomitant]
     Active Substance: CEFTRIAXONE SODIUM
  4. OCALIVA [Suspect]
     Active Substance: OBETICHOLIC ACID
     Indication: PRIMARY BILIARY CHOLANGITIS
     Dosage: 5 MG, QD
     Route: 048
     Dates: start: 20170530
  5. URSODIOL. [Concomitant]
     Active Substance: URSODIOL
  6. NITROFURANTIN [Concomitant]
     Active Substance: NITROFURANTOIN
  7. OMEPRAZOLE. [Concomitant]
     Active Substance: OMEPRAZOLE
  8. MELATONIN [Concomitant]
     Active Substance: MELATONIN
  9. KEFLEX [Concomitant]
     Active Substance: CEPHALEXIN
  10. VITAMIN D3 [Concomitant]
     Active Substance: CHOLECALCIFEROL
  11. OCALIVA [Suspect]
     Active Substance: OBETICHOLIC ACID
     Dosage: 5 MG, QD
     Route: 048
     Dates: start: 20170530

REACTIONS (3)
  - Urinary tract infection [Unknown]
  - Pruritus [Unknown]
  - Influenza [Unknown]

NARRATIVE: CASE EVENT DATE: 201706
